FAERS Safety Report 8925767 (Version 1)
Quarter: 2012Q4

REPORT INFORMATION
  Report Type: 
  Country: JP (occurrence: JP)
  Receive Date: 20121126
  Receipt Date: 20121126
  Transmission Date: 20130627
  Serious: Yes (Other)
  Sender: FDA-Public Use
  Company Number: PHHY2012JP090394

PATIENT
  Age: 73 Year
  Sex: Male

DRUGS (2)
  1. ZOMETA [Suspect]
     Indication: METASTASES TO BONE
     Dosage: 4 mg, Once a month
     Route: 041
     Dates: start: 201005
  2. ZOMETA [Suspect]
     Dosage: 3 mg, QMO
     Route: 041
     Dates: end: 201210

REACTIONS (6)
  - Osteonecrosis of jaw [Unknown]
  - Osteitis [Recovering/Resolving]
  - Pain in jaw [Unknown]
  - Erythema [Unknown]
  - Bone swelling [Unknown]
  - Glomerular filtration rate decreased [Unknown]
